FAERS Safety Report 24339265 (Version 1)
Quarter: 2024Q3

REPORT INFORMATION
  Report Type: Spontaneous
  Country: US (occurrence: None)
  Receive Date: 20240918
  Receipt Date: 20240918
  Transmission Date: 20241017
  Serious: No
  Sender: Public
  Company Number: None

PATIENT
  Age: 73 Year
  Sex: Male

DRUGS (2)
  1. JAKAFI [Suspect]
     Active Substance: RUXOLITINIB
     Dosage: FREQUENCY : TWICE A DAY;?
     Route: 048
     Dates: start: 20220426
  2. JAKAFI [Concomitant]
     Active Substance: RUXOLITINIB
     Dates: start: 20220426

REACTIONS (3)
  - Fall [None]
  - Femur fracture [None]
  - Gait inability [None]

NARRATIVE: CASE EVENT DATE: 20240918
